FAERS Safety Report 4900568-2 (Version None)
Quarter: 2006Q1

REPORT INFORMATION
  Report Type: 
  Country: None (occurrence: None)
  Receive Date: 20060201
  Receipt Date: 20060116
  Transmission Date: 20060701
  Serious: Yes (Hospitalization)
  Sender: FDA-Public Use
  Company Number: 8013432

PATIENT
  Age: 14 Year
  Sex: Male
  Weight: 66.2 kg

DRUGS (3)
  1. METADATE CD [Suspect]
     Indication: ATTENTION DEFICIT/HYPERACTIVITY DISORDER
     Dosage: 20 MG/D PO
     Route: 048
     Dates: start: 20051108, end: 20051119
  2. ADDERALL 10 [Concomitant]
  3. MULTI-VITAMIN [Concomitant]

REACTIONS (18)
  - CARDIAC MURMUR [None]
  - CARDIOMEGALY [None]
  - CHEST PAIN [None]
  - DIZZINESS [None]
  - ELECTROCARDIOGRAM QT PROLONGED [None]
  - EMOTIONAL DISORDER [None]
  - FEAR [None]
  - HYPERHIDROSIS [None]
  - HYPERTENSION [None]
  - MITRAL VALVE INCOMPETENCE [None]
  - MITRAL VALVE PROLAPSE [None]
  - NEUTROPHIL COUNT INCREASED [None]
  - PALLOR [None]
  - PERICARDIAL RUB [None]
  - PLEURITIC PAIN [None]
  - PULMONARY VALVE INCOMPETENCE [None]
  - STRESS [None]
  - TRICUSPID VALVE INCOMPETENCE [None]
